FAERS Safety Report 7600075-2 (Version None)
Quarter: 2011Q3

REPORT INFORMATION
  Report Type: 
  Country: None (occurrence: None)
  Receive Date: 20110711
  Receipt Date: 20110629
  Transmission Date: 20111222
  Serious: Yes (Death, Life-Threatening, Hospitalization)
  Sender: FDA-Public Use
  Company Number: JP-JNJFOC-20100806327

PATIENT
  Age: 77 Year
  Sex: Male
  Weight: 49 kg

DRUGS (8)
  1. REMICADE [Suspect]
     Dosage: 2ND DOSE
     Route: 042
     Dates: start: 20100727
  2. HUMIRA [Concomitant]
     Indication: PSORIASIS
     Dosage: RECEIVED 9 DOSES
     Route: 058
     Dates: start: 20100223, end: 20100628
  3. TOPICAL CREAMS [Concomitant]
     Dates: start: 20100820
  4. ISONIAZID [Concomitant]
     Indication: ANTIBIOTIC PROPHYLAXIS
     Dates: start: 20100628
  5. DOVONEX [Concomitant]
     Indication: PSORIASIS
     Dates: start: 20100820
  6. ANTEBATE [Concomitant]
     Indication: PSORIASIS
     Dates: start: 20100820
  7. REMICADE [Suspect]
     Indication: PSORIASIS
     Route: 042
     Dates: start: 20100713
  8. TOPICAL CREAMS [Concomitant]
     Dates: end: 20100813

REACTIONS (4)
  - MENINGITIS BACTERIAL [None]
  - LUNG NEOPLASM MALIGNANT [None]
  - STREPTOCOCCUS TEST POSITIVE [None]
  - RASH PUSTULAR [None]
